FAERS Safety Report 10433383 (Version 1)
Quarter: 2014Q3

REPORT INFORMATION
  Report Type: Spontaneous
  Country: US (occurrence: US)
  Receive Date: 20140905
  Receipt Date: 20140905
  Transmission Date: 20150326
  Serious: Yes (Other)
  Sender: FDA-Public Use
  Company Number: US-009507513-1408USA016823

PATIENT
  Sex: Female

DRUGS (3)
  1. SOVALDI [Concomitant]
     Active Substance: SOFOSBUVIR
     Indication: HEPATITIS C
     Dosage: 400 MG, QD
     Dates: start: 20140708, end: 20140815
  2. PEGINTERFERON ALFA-2B [Suspect]
     Active Substance: PEGINTERFERON ALFA-2B
     Dosage: 180 MICROGRAM, QW
     Route: 058
     Dates: start: 20140708, end: 20140815
  3. REBETOL [Suspect]
     Active Substance: RIBAVIRIN
     Dosage: 1200 MG/ DAY
     Route: 048
     Dates: start: 20140708, end: 20140815

REACTIONS (2)
  - Abortion spontaneous [Unknown]
  - Exposure during pregnancy [Recovered/Resolved]

NARRATIVE: CASE EVENT DATE: 20140814
